FAERS Safety Report 7234419-0 (Version None)
Quarter: 2011Q1

REPORT INFORMATION
  Report Type: 
  Country: None (occurrence: None)
  Receive Date: 20110119
  Receipt Date: 20110114
  Transmission Date: 20110831
  Serious: Yes (Other)
  Sender: FDA-Public Use
  Company Number: US-PFIZER INC-2011012073

PATIENT
  Age: 60 Year
  Sex: Female
  Weight: 72.5 kg

DRUGS (1)
  1. ADVIL CONGESTION RELIEF [Suspect]
     Indication: NASAL CONGESTION
     Dosage: 1 TABLET, 1 TIME
     Route: 048
     Dates: start: 20110113, end: 20110113

REACTIONS (4)
  - ERYTHEMA [None]
  - PHARYNGEAL OEDEMA [None]
  - URTICARIA [None]
  - DYSPNOEA [None]
